FAERS Safety Report 7634648-8 (Version None)
Quarter: 2011Q3

REPORT INFORMATION
  Report Type: 
  Country: None (occurrence: None)
  Receive Date: 20110725
  Receipt Date: 20110719
  Transmission Date: 20111222
  Serious: Yes (Hospitalization, Other)
  Sender: FDA-Public Use
  Company Number: US-RB-025668-11

PATIENT
  Age: 30 Year
  Sex: Female

DRUGS (2)
  1. SUBOXONE [Suspect]
     Indication: PRODUCT USED FOR UNKNOWN INDICATION
     Dosage: DOSING INFORMATION UNKNOWN
     Route: 065
  2. SUBOXONE [Suspect]
     Indication: PRODUCT USED FOR UNKNOWN INDICATION
     Dosage: SUBLINGUAL FILM; DOSING INFORMATION UNKNOWN
     Route: 065

REACTIONS (20)
  - WRIST FRACTURE [None]
  - CYST [None]
  - FALL [None]
  - DEHYDRATION [None]
  - MALAISE [None]
  - SUBSTANCE ABUSE [None]
  - UNDERDOSE [None]
  - VOMITING [None]
  - PRURITUS [None]
  - CHILLS [None]
  - DIARRHOEA [None]
  - MUSCLE DISORDER [None]
  - JOINT DISLOCATION [None]
  - DRUG DEPENDENCE [None]
  - JOINT INJURY [None]
  - HOT FLUSH [None]
  - URTICARIA [None]
  - SWELLING [None]
  - HYPOAESTHESIA [None]
  - THERAPEUTIC RESPONSE UNEXPECTED [None]
